FAERS Safety Report 4541738-5 (Version None)
Quarter: 2004Q4

REPORT INFORMATION
  Report Type: 
  Country: None (occurrence: None)
  Receive Date: 20041227
  Receipt Date: 20041209
  Transmission Date: 20050328
  Serious: Yes (Hospitalization)
  Sender: FDA-Public Use
  Company Number: 2004VX000902

PATIENT
  Age: 68 Year
  Sex: Female

DRUGS (2)
  1. 5-FLUOROURACIL (FLUOROURACIL) [Suspect]
     Indication: GASTRIC CANCER
     Dosage: 500 MG, INTRAVENOUS
     Route: 042
     Dates: start: 20041007, end: 20041021
  2. CALCIUM LEVOFOLINATE [Concomitant]

REACTIONS (3)
  - ABDOMINAL PAIN [None]
  - DIARRHOEA [None]
  - PYREXIA [None]
